FAERS Safety Report 6343891-X (Version None)
Quarter: 2009Q3

REPORT INFORMATION
  Report Type: 
  Country: None (occurrence: None)
  Receive Date: 20090908
  Receipt Date: 20090825
  Transmission Date: 20100115
  Serious: Yes (Other)
  Sender: FDA-Public Use
  Company Number: GB-PFIZER INC-2009241243

PATIENT
  Age: 74 Year

DRUGS (1)
  1. XALATAN [Suspect]
     Indication: GLAUCOMA
     Dosage: UNK
     Route: 047
     Dates: start: 20050101, end: 20080101

REACTIONS (4)
  - HAIR COLOUR CHANGES [None]
  - MADAROSIS [None]
  - SKIN HYPERPIGMENTATION [None]
  - VITILIGO [None]
